FAERS Safety Report 9921221 (Version 2)
Quarter: 2014Q1

REPORT INFORMATION
  Report Type: Spontaneous
  Country: US (occurrence: US)
  Receive Date: 20140225
  Receipt Date: 20140225
  Transmission Date: 20141002
  Serious: Yes (Death)
  Sender: FDA-Public Use
  Company Number: US-GE HEALTHCARE MEDICAL DIAGNOSTICS-OSCN-PR-0803S-0152

PATIENT
  Age: 59 Year
  Sex: Male

DRUGS (22)
  1. OMNISCAN [Suspect]
     Indication: PAIN IN EXTREMITY
     Route: 042
     Dates: start: 20021107, end: 20021107
  2. OMNISCAN [Suspect]
     Indication: VENOUS THROMBOSIS
     Route: 042
     Dates: start: 20021114, end: 20021114
  3. MAGNEVIST [Suspect]
     Indication: POOR PERIPHERAL CIRCULATION
     Route: 042
     Dates: start: 19970720, end: 19970720
  4. MAGNEVIST [Suspect]
     Indication: RENAL MASS
     Route: 042
     Dates: start: 20020720, end: 20020720
  5. MAGNEVIST [Suspect]
     Indication: TRANSPLANT EVALUATION
     Route: 042
     Dates: start: 20030805, end: 20030805
  6. OPTIMARK [Suspect]
     Indication: PRODUCT USED FOR UNKNOWN INDICATION
     Route: 042
  7. PROHANCE [Suspect]
     Indication: PRODUCT USED FOR UNKNOWN INDICATION
     Route: 042
  8. MULTIHANCE [Suspect]
     Indication: PRODUCT USED FOR UNKNOWN INDICATION
     Route: 042
  9. PREDNISONE [Concomitant]
     Indication: RENAL DISORDER
  10. PREDNISONE [Concomitant]
     Indication: ARTHRITIS
  11. NEURONTIN [Concomitant]
     Indication: NEUROPATHY PERIPHERAL
     Dates: start: 2002
  12. PLAVIX [Concomitant]
     Indication: PRODUCT USED FOR UNKNOWN INDICATION
  13. LOVASTATIN [Concomitant]
     Indication: PRODUCT USED FOR UNKNOWN INDICATION
  14. METOPROLOL [Concomitant]
     Indication: PRODUCT USED FOR UNKNOWN INDICATION
  15. LEVOTHYROXIN [Concomitant]
     Indication: PRODUCT USED FOR UNKNOWN INDICATION
  16. PROCRIT [Concomitant]
     Indication: PRODUCT USED FOR UNKNOWN INDICATION
  17. RENAGEL [Concomitant]
     Indication: PRODUCT USED FOR UNKNOWN INDICATION
  18. LIPITOR [Concomitant]
     Indication: PRODUCT USED FOR UNKNOWN INDICATION
  19. EPOGEN [Concomitant]
     Indication: PRODUCT USED FOR UNKNOWN INDICATION
  20. ARANESP [Concomitant]
     Indication: PRODUCT USED FOR UNKNOWN INDICATION
  21. NEORAL [Concomitant]
     Indication: PRODUCT USED FOR UNKNOWN INDICATION
  22. ALLOPURINOL [Concomitant]
     Indication: PRODUCT USED FOR UNKNOWN INDICATION

REACTIONS (1)
  - Nephrogenic systemic fibrosis [Fatal]
